FAERS Safety Report 14293012 (Version 2)
Quarter: 2017Q4

REPORT INFORMATION
  Report Type: Spontaneous
  Country: GR (occurrence: GR)
  Receive Date: 20171215
  Receipt Date: 20171220
  Transmission Date: 20180321
  Serious: Yes (Death, Other)
  Sender: FDA-Public Use
  Company Number: GR-JNJFOC-20171216028

PATIENT

DRUGS (2)
  1. INTERFERON ALFA NOS [Suspect]
     Active Substance: INTERFERON ALFA-2A OR INTERFERON ALFA-2B
     Indication: SYSTEMIC MASTOCYTOSIS
     Route: 065
  2. IBRUTINIB [Suspect]
     Active Substance: IBRUTINIB
     Indication: SYSTEMIC MASTOCYTOSIS
     Route: 048

REACTIONS (3)
  - Product use in unapproved indication [Unknown]
  - Infection [Fatal]
  - Off label use [Unknown]
